FAERS Safety Report 4790438-5 (Version None)
Quarter: 2005Q4

REPORT INFORMATION
  Report Type: 
  Country: None (occurrence: None)
  Receive Date: 20051005
  Receipt Date: 20050915
  Transmission Date: 20060501
  Serious: Yes (Hospitalization, Other)
  Sender: FDA-Public Use
  Company Number: USA0509108310

PATIENT
  Age: 80 Year
  Sex: Female

DRUGS (1)
  1. HUMULIN R [Suspect]

REACTIONS (5)
  - AORTIC VALVE REPLACEMENT [None]
  - BIPOLAR DISORDER [None]
  - DIABETIC NEUROPATHY [None]
  - DIFFICULTY IN WALKING [None]
  - PAIN [None]
